FAERS Safety Report 19453224 (Version 1)
Quarter: 2021Q2

REPORT INFORMATION
  Report Type: Spontaneous
  Country: US (occurrence: US)
  Receive Date: 20210623
  Receipt Date: 20210623
  Transmission Date: 20210717
  Serious: Yes (Hospitalization)
  Sender: FDA-Public Use
  Company Number: US-SA-2021SA206259

PATIENT
  Age: 80 Year
  Sex: Female

DRUGS (8)
  1. ALBUTEROL [SALBUTAMOL] [Concomitant]
     Active Substance: ALBUTEROL
  2. HYDRALAZINE [Concomitant]
     Active Substance: HYDRALAZINE HYDROCHLORIDE
  3. ALPRAZOLAM. [Concomitant]
     Active Substance: ALPRAZOLAM
  4. FUROSEMIDE. [Concomitant]
     Active Substance: FUROSEMIDE
  5. DUPIXENT [Suspect]
     Active Substance: DUPILUMAB
     Indication: ASTHMA
     Dosage: 300 MG, QOW
     Route: 058
     Dates: start: 20200311
  6. PREDNISONE. [Concomitant]
     Active Substance: PREDNISONE
  7. SPIRONOLACTON [Concomitant]
     Active Substance: SPIRONOLACTONE
  8. SOTALOL HCL [Concomitant]
     Active Substance: SOTALOL

REACTIONS (1)
  - Heart valve incompetence [Not Recovered/Not Resolved]
